FAERS Safety Report 8346937-2 (Version None)
Quarter: 2012Q2

REPORT INFORMATION
  Report Type: 
  Country: None (occurrence: None)
  Receive Date: 20120509
  Receipt Date: 20120426
  Transmission Date: 20120825
  Serious: Yes (Other)
  Sender: FDA-Public Use
  Company Number: FR-CELGENEUS-056-C5013-12032564

PATIENT
  Sex: Male

DRUGS (12)
  1. OMEPRAZOLE [Concomitant]
     Indication: METAPLASIA
     Dosage: 40 MILLIGRAM
     Route: 048
     Dates: start: 20100731
  2. ACETAMINOPHEN AND TRAMADOL HCL [Concomitant]
     Indication: BONE PAIN
     Dosage: 1 TABLET
     Route: 048
     Dates: start: 20110201
  3. ACETAMINOPHEN [Concomitant]
     Indication: BONE PAIN
     Route: 048
     Dates: start: 20080101
  4. PREVISCAN [Concomitant]
     Indication: THROMBOSIS PROPHYLAXIS
     Dosage: 10 MILLIGRAM
     Route: 048
     Dates: start: 20090306
  5. ZOPICLONE [Concomitant]
     Indication: INSOMNIA
     Dosage: 7.5 MILLIGRAM
     Route: 048
     Dates: start: 20120202
  6. LENALIDOMIDE [Suspect]
     Indication: MULTIPLE MYELOMA
     Dosage: 25 MILLIGRAM
     Route: 048
     Dates: start: 20081210
  7. LENALIDOMIDE [Suspect]
     Dosage: 25 MILLIGRAM
     Route: 048
     Dates: start: 20120301
  8. DEXAMETHASONE [Suspect]
     Indication: MULTIPLE MYELOMA
     Route: 065
     Dates: start: 20081210, end: 20100106
  9. ENALAPRIL MALEATE [Concomitant]
     Dosage: 20 MILLIGRAM
     Route: 048
     Dates: start: 19860101
  10. ENALAPRIL MALEATE [Concomitant]
     Route: 048
     Dates: start: 20120202
  11. MOVIPREP [Concomitant]
     Indication: CONSTIPATION PROPHYLAXIS
     Route: 048
     Dates: start: 20120202
  12. ORACILLIN [Concomitant]
     Indication: INFECTION PROPHYLAXIS
     Dosage: MIU
     Route: 048
     Dates: start: 20080106

REACTIONS (1)
  - BASAL CELL CARCINOMA [None]
